FAERS Safety Report 10263327 (Version 2)
Quarter: 2014Q2

REPORT INFORMATION
  Report Type: Report from Study
  Country: US (occurrence: US)
  Receive Date: 20140626
  Receipt Date: 20140626
  Transmission Date: 20141212
  Serious: Yes (Other)
  Sender: FDA-Public Use
  Company Number: US-MYLANLABS-2013S1006848

PATIENT
  Age: 59 Year
  Sex: Female
  Weight: 102.51 kg

DRUGS (5)
  1. CLOZAPINE TABLETS [Suspect]
     Indication: SCHIZOPHRENIA
     Route: 048
     Dates: end: 20140410
  2. LEVOTHYROXINE [Concomitant]
     Route: 048
  3. DEPAKOTE [Concomitant]
     Route: 048
  4. NUEDEXTA /07198301/ [Concomitant]
     Dosage: 20-10MG
     Route: 048
  5. EFFEXOR [Concomitant]
     Route: 048

REACTIONS (1)
  - Granulocytopenia [Not Recovered/Not Resolved]
